FAERS Safety Report 10986044 (Version 1)
Quarter: 2015Q1

REPORT INFORMATION
  Report Type: Spontaneous
  Country: US (occurrence: None)
  Receive Date: 20150324
  Receipt Date: 20150324
  Transmission Date: 20150721
  Serious: Yes (Hospitalization)
  Sender: FDA-Public Use
  Company Number: 2014STPI000523

PATIENT
  Age: 16 Year
  Sex: Female

DRUGS (1)
  1. ONCASPAR [Suspect]
     Active Substance: PEGASPARGASE
     Indication: LYMPHOCYTIC LEUKAEMIA
     Dates: start: 2014

REACTIONS (2)
  - Haemorrhage intracranial [None]
  - Thrombosis [None]

NARRATIVE: CASE EVENT DATE: 2014
